FAERS Safety Report 9185655 (Version 4)
Quarter: 2013Q4

REPORT INFORMATION
  Report Type: Spontaneous
  Country: JP (occurrence: JP)
  Receive Date: 20130325
  Receipt Date: 20131001
  Transmission Date: 20140711
  Serious: Yes (Life-Threatening, Other)
  Sender: FDA-Public Use
  Company Number: JP-009507513-2011SP015868

PATIENT
  Age: 58 Year
  Sex: Female
  Weight: 39 kg

DRUGS (14)
  1. BRIDION INTRAVENOUS 200MG [Suspect]
     Indication: NEUROMUSCULAR BLOCKADE REVERSAL
     Dosage: 200 MG, QD
     Route: 042
     Dates: start: 20110324, end: 20110324
  2. ROCURONIUM BROMIDE [Suspect]
     Indication: NEUROMUSCULAR BLOCKADE
     Dosage: 0.60 MG/KG, UNK
     Route: 042
  3. ULTIVA [Concomitant]
     Indication: GENERAL ANAESTHESIA
     Dosage: DAILY DOSE UNKNOWN
     Dates: start: 20110324
  4. FENTANYL CITRATE [Concomitant]
     Dosage: DAILY DOSE UNKNOWN
     Dates: start: 20110324
  5. DIPRIVAN [Concomitant]
     Indication: GENERAL ANAESTHESIA
     Route: 065
     Dates: start: 20110324
  6. XYLOCAINE [Concomitant]
     Dosage: DAILY DOSE UNKNOWN
     Route: 065
     Dates: start: 20110324
  7. MEPIVACAINE HYDROCHLORIDE [Concomitant]
     Dosage: DAILY DOSE UNKNOWN
     Dates: start: 20110324
  8. POPSCAINE [Concomitant]
     Dosage: DAILY DOSE UNKNOWN
     Route: 065
     Dates: start: 20110324
  9. EPHEDRINE HYDROCHLORIDE [Concomitant]
     Dosage: DAILY DOSE UNKNOWN
     Route: 065
     Dates: start: 20110324
  10. BICARBON (CALCIUM CHLORIDE (+) MAGNESIUM CHLORIDE (+) POTASSIUM CHLORI [Concomitant]
     Dosage: DAILY DOSE UNKNOWN
     Route: 065
     Dates: start: 20110324
  11. SALINHES [Concomitant]
     Dosage: DAILY DOSE UNKNOWN
     Dates: start: 20110324
  12. NEOSYNESIN [Concomitant]
     Dosage: DAILY DOSE UNKNOWN
     Route: 065
     Dates: start: 20110324
  13. ESLAX [Concomitant]
     Indication: NEUROMUSCULAR BLOCKING THERAPY
     Dosage: DAILY DOSE UNKNOWN
     Route: 042
     Dates: start: 20110324
  14. ISOTONIC SODIUM CHLORIDE SOLUTION [Concomitant]
     Dosage: DAILY DOSE UNKNOWN
     Route: 065
     Dates: start: 20110324

REACTIONS (4)
  - Generalised erythema [Recovered/Resolved]
  - Anaphylactic shock [Recovered/Resolved]
  - Blood pressure decreased [Recovered/Resolved]
  - Tachycardia [Recovered/Resolved]
